FAERS Safety Report 9233216 (Version 1)
Quarter: 2013Q2

REPORT INFORMATION
  Report Type: Spontaneous
  Country: US (occurrence: US)
  Receive Date: 20130416
  Receipt Date: 20130416
  Transmission Date: 20140414
  Serious: Yes (Hospitalization)
  Sender: FDA-Public Use
  Company Number: US-BANPHARM-20130893

PATIENT
  Age: 20 Year
  Sex: Male
  Weight: 61.24 kg

DRUGS (1)
  1. ALEVE LIQUID GELS 220MG [Suspect]
     Indication: PAIN
     Dosage: 2 DF, ONCE,
     Route: 048
     Dates: start: 20120330, end: 20120330

REACTIONS (1)
  - Hypersensitivity [Recovered/Resolved]
